FAERS Safety Report 9715348 (Version 3)
Quarter: 2013Q4

REPORT INFORMATION
  Report Type: Spontaneous
  Country: JP (occurrence: JP)
  Receive Date: 20131127
  Receipt Date: 20131207
  Transmission Date: 20140711
  Serious: Yes (Hospitalization)
  Sender: FDA-Public Use
  Company Number: JP-AMGEN-JPNOT2013079976

PATIENT
  Age: 68 Year
  Sex: Female
  Weight: 37 kg

DRUGS (9)
  1. RANMARK [Suspect]
     Indication: PLASMA CELL MYELOMA
     Dosage: 120 MG, QD
     Route: 058
     Dates: start: 20130621
  2. PYRINAZIN [Concomitant]
     Indication: CANCER PAIN
     Route: 048
     Dates: start: 20130617
  3. TAKEPRON [Concomitant]
     Route: 048
     Dates: start: 20130617
  4. CARDENALIN [Concomitant]
     Indication: HYPERTENSION
     Route: 048
     Dates: start: 20130617
  5. ZYLORIC [Concomitant]
     Route: 048
     Dates: start: 20130618
  6. ADALAT [Concomitant]
     Indication: HYPERTENSION
     Route: 048
     Dates: start: 20130625
  7. ALFAROL [Concomitant]
     Route: 048
     Dates: start: 20130624
  8. VELCADE [Concomitant]
     Indication: PLASMA CELL MYELOMA
     Route: 058
     Dates: start: 20130624
  9. MORPHINE HYDROCHLORIDE [Concomitant]
     Indication: CANCER PAIN
     Route: 058
     Dates: start: 20130619

REACTIONS (1)
  - Hypocalcaemia [Recovered/Resolved]
